FAERS Safety Report 18693967 (Version 1)
Quarter: 2021Q1

REPORT INFORMATION
  Report Type: Spontaneous
  Country: DE (occurrence: DE)
  Receive Date: 20210104
  Receipt Date: 20210104
  Transmission Date: 20210419
  Serious: Yes (Hospitalization)
  Sender: FDA-Public Use
  Company Number: PHHY2018DE029760

PATIENT
  Age: 36 Year
  Sex: Female
  Weight: 58 kg

DRUGS (15)
  1. PROGESTAN [Suspect]
     Active Substance: PROGESTERONE
     Indication: PROPHYLAXIS OF ABORTION
     Dosage: 200 MG, QD (4.3. ? 12.6. GESTATIONAL WEEK)
     Route: 067
     Dates: start: 20170119
  2. DIMENHYDRINATE. [Concomitant]
     Active Substance: DIMENHYDRINATE
     Indication: MORNING SICKNESS
     Dosage: 50 MG, QD (6. ? 23.1. GESTATIONAL WEEK)
     Route: 048
  3. ASPIRIN. [Concomitant]
     Active Substance: ASPIRIN
     Dosage: 100 MG, QD (4.3. ? 33.6. GESTATIONAL WEEK)
     Route: 048
     Dates: start: 20170615
  4. PROGESTAN [Suspect]
     Active Substance: PROGESTERONE
     Dosage: 100 MG EACH IN THE MORNING AND EVENING
     Route: 067
     Dates: start: 2020, end: 202003
  5. ONDANSETRON [Concomitant]
     Active Substance: ONDANSETRON
     Indication: MORNING SICKNESS
     Dosage: 8 MG, QD (7.6. ? 23.1. GESTATIONAL WEEK)
     Route: 048
  6. FOLSAEURE [Concomitant]
     Active Substance: FOLIC ACID
     Indication: PROPHYLAXIS OF NEURAL TUBE DEFECT
     Dosage: 4.4 MG, QD (0. ? 39. GESTATIONAL WEEK)
     Route: 048
     Dates: start: 20161021
  7. TEARS AGAIN [Concomitant]
     Active Substance: POLYVINYL ALCOHOL
     Indication: SJOGREN^S SYNDROME
     Dosage: UNK (0. ? 39. GESTATIONAL WEEK)
     Route: 047
  8. L?THYROXINE [Concomitant]
     Active Substance: LEVOTHYROXINE
     Dosage: 50 MG, QD (0. ? 39. GESTATIONAL WEEK)
     Route: 048
     Dates: start: 20170721
  9. ASPIRIN. [Concomitant]
     Active Substance: ASPIRIN
     Indication: PROPHYLAXIS OF ABORTION
     Dosage: 100 MG, QD (4.3. ? 33.6. GESTATIONAL WEEK)
     Route: 048
     Dates: start: 20161121
  10. L?THYROXINE [Concomitant]
     Active Substance: LEVOTHYROXINE
     Indication: HYPOTHYROIDISM
     Dosage: 50 MG, QD (0. ? 39. GESTATIONAL WEEK)
     Route: 048
     Dates: start: 20161020
  11. PROGESTAN [Suspect]
     Active Substance: PROGESTERONE
     Indication: ASSISTED REPRODUCTIVE TECHNOLOGY
     Dosage: 200 MG, QD (4.3. ? 12.6. GESTATIONAL WEEK)
     Route: 067
     Dates: start: 20161121
  12. OMEPRAZOL [Concomitant]
     Active Substance: OMEPRAZOLE
     Indication: GASTRITIS
     Dosage: 40 MG, QD (6.4. ? 7.5. GESTATIONAL WEEK)
     Route: 065
     Dates: start: 20161206
  13. OMEPRAZOL [Concomitant]
     Active Substance: OMEPRAZOLE
     Dosage: 40 MG, QD (6.4. ? 7.5. GESTATIONAL WEEK)
     Route: 065
     Dates: start: 20161214
  14. FOLSAEURE [Concomitant]
     Active Substance: FOLIC ACID
     Dosage: 4.4 MG, QD (0. ? 39. GESTATIONAL WEEK)
     Route: 048
     Dates: start: 20170721
  15. PANTOPRAZOL [Suspect]
     Active Substance: PANTOPRAZOLE SODIUM
     Indication: GASTRITIS
     Dosage: 80 MG, QD
     Route: 048

REACTIONS (8)
  - Dyspnoea [Recovered/Resolved]
  - Maternal exposure during pregnancy [Unknown]
  - Off label use [Unknown]
  - Heart rate increased [Recovered/Resolved]
  - Hypoglycaemia [Recovered/Resolved]
  - Breech presentation [Recovered/Resolved]
  - Blood glucose decreased [Recovered/Resolved]
  - Asthenia [Recovered/Resolved]

NARRATIVE: CASE EVENT DATE: 2020
